FAERS Safety Report 11381836 (Version 2)
Quarter: 2015Q3

REPORT INFORMATION
  Report Type: Spontaneous
  Country: US (occurrence: US)
  Receive Date: 20150814
  Receipt Date: 20150820
  Transmission Date: 20151125
  Serious: Yes (Death, Hospitalization)
  Sender: FDA-Public Use
  Company Number: US-CELGENE-USA-2015080213

PATIENT
  Age: 81 Year
  Sex: Female

DRUGS (4)
  1. REVLIMID [Suspect]
     Active Substance: LENALIDOMIDE
     Route: 048
     Dates: start: 201411, end: 201507
  2. REVLIMID [Suspect]
     Active Substance: LENALIDOMIDE
     Indication: PLASMA CELL MYELOMA
     Route: 048
     Dates: start: 201102
  3. REVLIMID [Suspect]
     Active Substance: LENALIDOMIDE
     Route: 048
     Dates: start: 20150729
  4. REVLIMID [Suspect]
     Active Substance: LENALIDOMIDE
     Dosage: 5-25 MG
     Route: 048
     Dates: start: 201104

REACTIONS (3)
  - Cardiac failure [Fatal]
  - Plasma cell myeloma [Fatal]
  - Pneumonia [Fatal]

NARRATIVE: CASE EVENT DATE: 20150729
